FAERS Safety Report 19680222 (Version 1)
Quarter: 2021Q3

REPORT INFORMATION
  Report Type: Spontaneous
  Country: CN (occurrence: CN)
  Receive Date: 20210810
  Receipt Date: 20210810
  Transmission Date: 20211014
  Serious: Yes (Other)
  Sender: FDA-Public Use
  Company Number: CN-PFIZER INC-202100963680

PATIENT
  Age: 46 Year
  Sex: Female

DRUGS (1)
  1. SOLU?MEDROL [Suspect]
     Active Substance: METHYLPREDNISOLONE SODIUM SUCCINATE
     Indication: THERAPEUTIC PROCEDURE
     Dosage: 1000 MG, 1X/DAY
     Route: 041
     Dates: start: 20210601, end: 20210605

REACTIONS (8)
  - Feeling hot [Recovering/Resolving]
  - Eyelid rash [Recovering/Resolving]
  - Hypertension [Recovering/Resolving]
  - Rash [Recovering/Resolving]
  - Flushing [Recovering/Resolving]
  - Palpitations [Recovering/Resolving]
  - Chest discomfort [Recovering/Resolving]
  - Burning sensation [Recovering/Resolving]

NARRATIVE: CASE EVENT DATE: 20210602
